FAERS Safety Report 7975469-6 (Version None)
Quarter: 2011Q4

REPORT INFORMATION
  Report Type: 
  Country: None (occurrence: None)
  Receive Date: 20111213
  Receipt Date: 20110929
  Transmission Date: 20120403
  Serious: No
  Sender: FDA-Public Use
  Company Number: US-AMGEN-USASP2011050392

PATIENT
  Sex: Female

DRUGS (2)
  1. ENBREL [Suspect]
     Indication: RHEUMATOID ARTHRITIS
     Dosage: 25 MG, 3 TIMES/WK
     Dates: start: 20030101
  2. HUMIRA [Concomitant]

REACTIONS (3)
  - INJECTION SITE PAIN [None]
  - RHEUMATOID ARTHRITIS [None]
  - MYALGIA [None]
